FAERS Safety Report 5654917-0 (Version None)
Quarter: 2008Q1

REPORT INFORMATION
  Report Type: 
  Country: None (occurrence: None)
  Receive Date: 20080307
  Receipt Date: 20070830
  Transmission Date: 20080703
  Serious: No
  Sender: FDA-Public Use
  Company Number: A0679337A

PATIENT
  Sex: Female

DRUGS (2)
  1. REQUIP [Suspect]
     Indication: RESTLESS LEGS SYNDROME
  2. TRAMADOL HCL [Suspect]
     Indication: DRUG USE FOR UNKNOWN INDICATION

REACTIONS (3)
  - DRUG INTERACTION [None]
  - INSOMNIA [None]
  - RESTLESS LEGS SYNDROME [None]
